FAERS Safety Report 19785551 (Version 3)
Quarter: 2022Q3

REPORT INFORMATION
  Report Type: Spontaneous
  Country: US (occurrence: US)
  Receive Date: 20210903
  Receipt Date: 20220718
  Transmission Date: 20221027
  Serious: Yes (Other)
  Sender: FDA-Public Use
  Company Number: US-SA-SAC20210901000579

PATIENT
  Age: 43 Year
  Sex: Female

DRUGS (1)
  1. AUBAGIO [Suspect]
     Active Substance: TERIFLUNOMIDE
     Indication: Multiple sclerosis
     Dosage: 14 MG, QD
     Route: 048
     Dates: start: 20210415

REACTIONS (6)
  - Multiple sclerosis relapse [Unknown]
  - Multiple sclerosis [Unknown]
  - Throat lesion [Unknown]
  - Condition aggravated [Unknown]
  - Oral disorder [Unknown]
  - Condition aggravated [Unknown]
